FAERS Safety Report 22587012 (Version 1)
Quarter: 2023Q2

REPORT INFORMATION
  Report Type: Spontaneous
  Country: RU (occurrence: RU)
  Receive Date: 20230612
  Receipt Date: 20230612
  Transmission Date: 20230722
  Serious: Yes (Other)
  Sender: FDA-Public Use
  Company Number: RU-ABBVIE-5284854

PATIENT
  Age: 25 Year
  Sex: Male
  Weight: 78 kg

DRUGS (3)
  1. LOPINAVIR\RITONAVIR [Suspect]
     Active Substance: LOPINAVIR\RITONAVIR
     Indication: HIV infection
     Dosage: 0.4/01, AS REPORTED, NOT OTHER SPECIFIED
     Route: 048
     Dates: start: 20190607, end: 20191009
  2. Virfoten (Tenofovir) [Concomitant]
     Indication: Product used for unknown indication
     Route: 048
     Dates: start: 20190607
  3. LAMIVUDINE [Concomitant]
     Active Substance: LAMIVUDINE
     Indication: Product used for unknown indication
     Route: 048
     Dates: start: 20190607

REACTIONS (1)
  - Diarrhoea [Recovered/Resolved]
